FAERS Safety Report 7995839-X (Version None)
Quarter: 2011Q4

REPORT INFORMATION
  Report Type: 
  Country: None (occurrence: None)
  Receive Date: 20111220
  Receipt Date: 20111209
  Transmission Date: 20120403
  Serious: Yes (Hospitalization)
  Sender: FDA-Public Use
  Company Number: JP-NOVOPROD-341170

PATIENT

DRUGS (3)
  1. VICTOZA [Suspect]
     Indication: DIABETES MELLITUS
     Dosage: 0.9 MG, QD
     Route: 058
     Dates: start: 20101008
  2. LIVALO [Concomitant]
     Dosage: 1 MG, QD
     Route: 048
  3. AMARYL [Concomitant]
     Dosage: 4 MG, QD
     Route: 048

REACTIONS (1)
  - SUBCUTANEOUS ABSCESS [None]
